FAERS Safety Report 8918155 (Version 1)
Quarter: 2012Q4

REPORT INFORMATION
  Report Type: 
  Country: US (occurrence: US)
  Receive Date: 20121120
  Receipt Date: 20121120
  Transmission Date: 20130627
  Serious: No
  Sender: FDA-Public Use
  Company Number: US-009507513-1211USA007980

PATIENT
  Age: 17 Year
  Sex: Female
  Weight: 68.27 kg

DRUGS (1)
  1. CLARITIN REDITABS [Suspect]
     Indication: NASOPHARYNGITIS
     Dosage: 10 mg, Once
     Route: 048
     Dates: start: 20120906

REACTIONS (2)
  - Overdose [Unknown]
  - Off label use [Unknown]
